FAERS Safety Report 23408268 (Version 1)
Quarter: 2024Q1

REPORT INFORMATION
  Report Type: Spontaneous
  Country: JP (occurrence: JP)
  Receive Date: 20240117
  Receipt Date: 20240117
  Transmission Date: 20240410
  Serious: Yes (Other)
  Sender: FDA-Public Use
  Company Number: JP-BRISTOL-MYERS SQUIBB COMPANY-2024-008012

PATIENT
  Age: 8 Decade
  Sex: Male

DRUGS (13)
  1. VIDAZA [Suspect]
     Active Substance: AZACITIDINE
     Indication: Transformation to acute myeloid leukaemia
     Dosage: THERAPY END DATE: AUG-2023
     Route: 042
     Dates: start: 20230822
  2. VIDAZA [Suspect]
     Active Substance: AZACITIDINE
     Route: 042
     Dates: start: 2023
  3. VENETOCLAX [Concomitant]
     Active Substance: VENETOCLAX
     Indication: Transformation to acute myeloid leukaemia
     Dates: start: 2023, end: 202309
  4. VENETOCLAX [Concomitant]
     Active Substance: VENETOCLAX
     Dates: start: 2023
  5. BENZBROMARONE [Concomitant]
     Active Substance: BENZBROMARONE
     Indication: Product used for unknown indication
  6. POTASSIUM CITRATE;SODIUM CITRATE DIHYDRATE [Concomitant]
     Indication: Product used for unknown indication
  7. TADALAFIL [Concomitant]
     Active Substance: TADALAFIL
     Indication: Product used for unknown indication
  8. DUTASTERIDE [Concomitant]
     Active Substance: DUTASTERIDE
     Indication: Product used for unknown indication
  9. CELECOXIB [Concomitant]
     Active Substance: CELECOXIB
     Indication: Product used for unknown indication
  10. DAYVIGO [Concomitant]
     Active Substance: LEMBOREXANT
     Indication: Product used for unknown indication
  11. RABEPRAZOLE SODIUM [Concomitant]
     Active Substance: RABEPRAZOLE SODIUM
     Indication: Product used for unknown indication
  12. HYDREA [Concomitant]
     Active Substance: HYDROXYUREA
     Indication: Product used for unknown indication
  13. DECADRON [Concomitant]
     Active Substance: DEXAMETHASONE
     Indication: Product used for unknown indication

REACTIONS (5)
  - Platelet count decreased [Unknown]
  - Neutrophil count decreased [Unknown]
  - Monocyte count decreased [Unknown]
  - Atrial fibrillation [Unknown]
  - Cardiac failure [Unknown]

NARRATIVE: CASE EVENT DATE: 20230801
